FAERS Safety Report 17875024 (Version 2)
Quarter: 2020Q2

REPORT INFORMATION
  Report Type: Spontaneous
  Country: US (occurrence: US)
  Receive Date: 20200609
  Receipt Date: 20200610
  Transmission Date: 20200714
  Serious: No
  Sender: FDA-Public Use
  Company Number: US-PFIZER INC-2020224370

PATIENT
  Age: 48 Year
  Sex: Male

DRUGS (2)
  1. CARAFATE [Suspect]
     Active Substance: SUCRALFATE
     Dosage: UNK, 3X/DAY
  2. BOSULIF [Suspect]
     Active Substance: BOSUTINIB MONOHYDRATE
     Dosage: 500 MG
     Dates: start: 20200109

REACTIONS (1)
  - Tumour marker increased [Unknown]
